FAERS Safety Report 10744691 (Version 1)
Quarter: 2015Q1

REPORT INFORMATION
  Report Type: Spontaneous
  Country: US (occurrence: None)
  Receive Date: 20150126
  Receipt Date: 20150126
  Transmission Date: 20150721
  Serious: No
  Sender: FDA-Public Use
  Company Number: None

PATIENT
  Age: 74 Year
  Sex: Female

DRUGS (1)
  1. FORTEO [Suspect]
     Active Substance: TERIPARATIDE
     Route: 058
     Dates: start: 201411, end: 201412

REACTIONS (4)
  - Chest discomfort [None]
  - Bedridden [None]
  - Dyspnoea [None]
  - Rales [None]

NARRATIVE: CASE EVENT DATE: 20141224
